FAERS Safety Report 12818300 (Version 1)
Quarter: 2016Q4

REPORT INFORMATION
  Report Type: Spontaneous
  Country: ZA (occurrence: ZA)
  Receive Date: 20161006
  Receipt Date: 20161006
  Transmission Date: 20170207
  Serious: Yes (Other)
  Sender: FDA-Public Use
  Company Number: ZA-009507513-1610ZAF000108

PATIENT
  Sex: Female

DRUGS (1)
  1. INEGY 10/10 [Suspect]
     Active Substance: EZETIMIBE\SIMVASTATIN
     Dosage: UNK
     Route: 048

REACTIONS (4)
  - Headache [Unknown]
  - Dyspnoea [Unknown]
  - Upper airway obstruction [Unknown]
  - Hypersensitivity [Unknown]
